FAERS Safety Report 14029962 (Version 7)
Quarter: 2018Q1

REPORT INFORMATION
  Report Type: Report from Study
  Country: IE (occurrence: IE)
  Receive Date: 20171002
  Receipt Date: 20180315
  Transmission Date: 20180508
  Serious: Yes (Hospitalization, Other)
  Sender: FDA-Public Use
  Company Number: IE-VERTEX PHARMACEUTICALS-2017-005049

PATIENT
  Age: 18 Year
  Sex: Male
  Weight: 60 kg

DRUGS (14)
  1. CREON [Concomitant]
     Active Substance: PANCRELIPASE AMYLASE\PANCRELIPASE LIPASE\PANCRELIPASE PROTEASE
     Indication: ENZYME SUPPLEMENTATION
     Dosage: ONE BEFORE AND DURING MEALS
  2. NEBUSAL [Concomitant]
     Indication: CYSTIC FIBROSIS
     Dosage: UNK
  3. ADEK [Concomitant]
     Dosage: UNK
  4. TAZOCIN [Suspect]
     Active Substance: PIPERACILLIN SODIUM\TAZOBACTAM SODIUM
     Dosage: 4.5 GRAM
     Route: 042
  5. TOBRAMYCIN. [Concomitant]
     Active Substance: TOBRAMYCIN
     Dosage: UNK
     Route: 042
     Dates: start: 20170820, end: 20170908
  6. TAZOCIN [Suspect]
     Active Substance: PIPERACILLIN SODIUM\TAZOBACTAM SODIUM
     Indication: LOWER RESPIRATORY TRACT INFECTION
     Dosage: UNK
     Route: 042
     Dates: start: 20170824, end: 20170908
  7. CREON [Concomitant]
     Active Substance: PANCRELIPASE AMYLASE\PANCRELIPASE LIPASE\PANCRELIPASE PROTEASE
     Dosage: ONE BEFORE AND DURING MEALS
  8. BECLOMETHASONE                     /00212601/ [Concomitant]
     Indication: CYSTIC FIBROSIS
     Dosage: 50 MICROGRAM, QD
  9. AZITHROMYCIN ANHYDROUS. [Concomitant]
     Active Substance: AZITHROMYCIN ANHYDROUS
     Dosage: MONDAY, WEDNESDAY AND FRIDAY
  10. ORKAMBI [Suspect]
     Active Substance: IVACAFTOR\LUMACAFTOR
     Dosage: 2 DOSAGE FORM, BID
     Route: 048
     Dates: start: 20170920, end: 20170920
  11. ADEK [Concomitant]
     Indication: VITAMIN SUPPLEMENTATION
     Dosage: UNK
  12. ORKAMBI [Suspect]
     Active Substance: IVACAFTOR\LUMACAFTOR
     Indication: CYSTIC FIBROSIS
     Dosage: 2 DOSAGE FORM, BID
     Route: 048
     Dates: start: 20170831, end: 20170910
  13. PULMOZYME [Concomitant]
     Active Substance: DORNASE ALFA
     Indication: CYSTIC FIBROSIS
     Dosage: 2.5 MG, QD
  14. AZITHROMYCIN ANHYDROUS. [Concomitant]
     Active Substance: AZITHROMYCIN ANHYDROUS
     Indication: CYSTIC FIBROSIS
     Dosage: 500 MG, M, W,F

REACTIONS (13)
  - Lip swelling [Recovered/Resolved]
  - Toxic epidermal necrolysis [Recovered/Resolved]
  - Pyrexia [Recovered/Resolved]
  - Decreased appetite [Recovered/Resolved]
  - Stevens-Johnson syndrome [Recovered/Resolved]
  - Rash generalised [Recovered/Resolved]
  - Sepsis [Recovered/Resolved]
  - Blood lactic acid increased [Recovered/Resolved]
  - Hypotension [Recovered/Resolved]
  - Infective pulmonary exacerbation of cystic fibrosis [Recovering/Resolving]
  - Swelling face [Recovered/Resolved]
  - Oropharyngeal pain [Recovered/Resolved]
  - Rash erythematous [Recovered/Resolved]

NARRATIVE: CASE EVENT DATE: 2017
